FAERS Safety Report 5234176-3 (Version None)
Quarter: 2007Q1

REPORT INFORMATION
  Report Type: 
  Country: None (occurrence: None)
  Receive Date: 20070209
  Receipt Date: 20070130
  Transmission Date: 20070707
  Serious: Yes (Hospitalization)
  Sender: FDA-Public Use
  Company Number: DE-JNJFOC-20060801437

PATIENT
  Age: 54 Year
  Sex: Female

DRUGS (7)
  1. REMICADE [Suspect]
     Route: 042
  2. REMICADE [Suspect]
     Indication: RHEUMATOID ARTHRITIS
     Route: 042
  3. ARAVA [Suspect]
     Route: 065
  4. ARAVA [Suspect]
     Indication: DRUG USE FOR UNKNOWN INDICATION
     Route: 065
  5. STEROIDS [Concomitant]
     Route: 065
  6. ADALIMUMAB [Concomitant]
     Route: 065
  7. ADALIMUMAB [Concomitant]
     Route: 065

REACTIONS (3)
  - ANKLE OPERATION [None]
  - IMPAIRED HEALING [None]
  - WOUND INFECTION [None]
